FAERS Safety Report 10906227 (Version 2)
Quarter: 2015Q2

REPORT INFORMATION
  Report Type: Report from Study
  Country: NL (occurrence: NL)
  Receive Date: 20150311
  Receipt Date: 20150601
  Transmission Date: 20150821
  Serious: Yes (Hospitalization, Other)
  Sender: FDA-Public Use
  Company Number: NL-ABBVIE-14P-114-1324794-00

PATIENT
  Age: 76 Year
  Sex: Male

DRUGS (1)
  1. DUODOPA [Suspect]
     Active Substance: CARBIDOPA\LEVODOPA
     Indication: PARKINSON^S DISEASE
     Dosage: 20/5MG/ML, MD: 7, CD: 5.9, ED: 6.5, NIGHT DOSE: 4.4
     Route: 050
     Dates: start: 20110203

REACTIONS (17)
  - Diarrhoea [Unknown]
  - Hallucination [Unknown]
  - Syncope [Unknown]
  - Gait disturbance [Unknown]
  - Fall [Recovered/Resolved]
  - Bowel movement irregularity [Unknown]
  - Fall [Unknown]
  - Abnormal behaviour [Not Recovered/Not Resolved]
  - Muscle rigidity [Unknown]
  - Somnolence [Unknown]
  - Confusional state [Unknown]
  - Aphasia [Recovered/Resolved]
  - Eye disorder [Recovered/Resolved]
  - Dyskinesia [Recovered/Resolved]
  - Abnormal dreams [Unknown]
  - Emotional disorder [Unknown]
  - Loss of consciousness [Unknown]

NARRATIVE: CASE EVENT DATE: 20141215
